FAERS Safety Report 5560719-6 (Version None)
Quarter: 2007Q4

REPORT INFORMATION
  Report Type: 
  Country: None (occurrence: None)
  Receive Date: 20071215
  Receipt Date: 20071126
  Transmission Date: 20080405
  Serious: No
  Sender: FDA-Public Use
  Company Number: US-ABBOTT-07P-163-0426239-00

PATIENT
  Sex: Female
  Weight: 68.1 kg

DRUGS (4)
  1. HUMIRA [Suspect]
     Indication: CROHN'S DISEASE
     Dates: start: 20070701
  2. MESALAMINE [Concomitant]
     Indication: CROHN'S DISEASE
  3. CIPROFLOXACIN [Concomitant]
     Indication: CROHN'S DISEASE
  4. 6 MP [Concomitant]
     Indication: CROHN'S DISEASE

REACTIONS (1)
  - MIGRAINE [None]
